FAERS Safety Report 7040976-X (Version None)
Quarter: 2010Q4

REPORT INFORMATION
  Report Type: 
  Country: None (occurrence: None)
  Receive Date: 20101013
  Receipt Date: 20101004
  Transmission Date: 20110411
  Serious: Yes (Hospitalization)
  Sender: FDA-Public Use
  Company Number: FR-ASTRAZENECA-2010SE46630

PATIENT
  Age: 29 Year

DRUGS (2)
  1. LIDOCAINE [Suspect]
     Indication: ANAESTHESIA
     Route: 053
  2. ROPIVACAINE [Suspect]
     Indication: ANAESTHESIA
     Route: 053

REACTIONS (1)
  - DRUG EFFECT PROLONGED [None]
